FAERS Safety Report 16252540 (Version 6)
Quarter: 2020Q2

REPORT INFORMATION
  Report Type: Spontaneous
  Country: CA (occurrence: CA)
  Receive Date: 20190429
  Receipt Date: 20200629
  Transmission Date: 20200713
  Serious: Yes (Other)
  Sender: FDA-Public Use
  Company Number: CA-PFIZER INC-2016518419

PATIENT
  Age: 54 Year
  Sex: Female

DRUGS (6)
  1. SOMATULINE [Concomitant]
     Active Substance: LANREOTIDE ACETATE
     Dosage: 120 MG, MONTHLY
  2. ADVIL [Concomitant]
     Active Substance: IBUPROFEN
     Indication: HEADACHE
     Dosage: 200MG-400MG PRN (AS NEEDED)
     Route: 048
  3. ADVIL [Concomitant]
     Active Substance: IBUPROFEN
     Indication: ARTHRALGIA
  4. SOMAVERT [Suspect]
     Active Substance: PEGVISOMANT
     Indication: ACROMEGALY
     Dosage: 15 MG, DAILY
     Route: 058
     Dates: start: 20150805, end: 2016
  5. SOMAVERT [Suspect]
     Active Substance: PEGVISOMANT
     Dosage: 20 MG, DAILY
     Route: 058
     Dates: start: 2016
  6. SOMAVERT [Suspect]
     Active Substance: PEGVISOMANT
     Dosage: 25 MG, DAILY
     Route: 058

REACTIONS (5)
  - Blood growth hormone increased [Recovered/Resolved]
  - Therapeutic product effect incomplete [Recovered/Resolved]
  - Hepatic enzyme abnormal [Recovered/Resolved]
  - Hernia [Unknown]
  - Arthropathy [Unknown]

NARRATIVE: CASE EVENT DATE: 2016
